FAERS Safety Report 23035161 (Version 1)
Quarter: 2023Q4

REPORT INFORMATION
  Report Type: Spontaneous
  Country: US (occurrence: US)
  Receive Date: 20231005
  Receipt Date: 20231005
  Transmission Date: 20240110
  Serious: No
  Sender: FDA-Public Use
  Company Number: US-SA-SAC20230929000786

PATIENT

DRUGS (2)
  1. LARONIDASE [Suspect]
     Active Substance: LARONIDASE
     Indication: Mucopolysaccharidosis I
     Dosage: 43.5 (UNITS UNSPECIFIED), QW
     Route: 042
     Dates: start: 20031027, end: 2023
  2. LARONIDASE [Suspect]
     Active Substance: LARONIDASE
     Dosage: 43.5 (UNITS UNSPECIFIED),  QW
     Route: 042
     Dates: start: 2023

REACTIONS (1)
  - Surgery [Recovered/Resolved]

NARRATIVE: CASE EVENT DATE: 20230830
